FAERS Safety Report 4903506-1 (Version None)
Quarter: 2006Q1

REPORT INFORMATION
  Report Type: 
  Country: None (occurrence: None)
  Receive Date: 20060206
  Receipt Date: 20060206
  Transmission Date: 20060701
  Serious: Yes (Hospitalization)
  Sender: FDA-Public Use
  Company Number: None

PATIENT
  Age: 73 Year
  Sex: Male
  Weight: 96.8 kg

DRUGS (3)
  1. QUETIAPINE [Suspect]
     Indication: BIPOLAR DISORDER
     Dosage: 300MG QAM;  400MG QPM
     Dates: start: 20050601, end: 20051201
  2. LASIX [Concomitant]
  3. LISINOPRIL [Concomitant]

REACTIONS (1)
  - HYPOTENSION [None]
